FAERS Safety Report 4605805-X (Version None)
Quarter: 2005Q1

REPORT INFORMATION
  Report Type: 
  Country: None (occurrence: None)
  Receive Date: 20050115
  Receipt Date: 20040820
  Transmission Date: 20050727
  Serious: Yes (Hospitalization)
  Sender: FDA-Public Use
  Company Number: A03200402907

PATIENT
  Sex: Female

DRUGS (1)
  1. AMBIEN [Suspect]
     Indication: INSOMNIA
     Dosage: 200 MG ONCE; ORAL
     Route: 048
     Dates: start: 20040818

REACTIONS (2)
  - CONFUSIONAL STATE [None]
  - OVERDOSE [None]
